FAERS Safety Report 10888695 (Version 2)
Quarter: 2015Q1

REPORT INFORMATION
  Report Type: Spontaneous
  Country: AT (occurrence: AT)
  Receive Date: 20150305
  Receipt Date: 20150318
  Transmission Date: 20150721
  Serious: Yes (Death, Hospitalization, Other)
  Sender: FDA-Public Use
  Company Number: AT-INTERMUNE, INC.-201502IM010663

PATIENT
  Age: 72 Year
  Sex: Male
  Weight: 74 kg

DRUGS (14)
  1. ESBRIET [Suspect]
     Active Substance: PIRFENIDONE
     Indication: IDIOPATHIC PULMONARY FIBROSIS
     Route: 048
     Dates: start: 20131120
  2. XARELTO [Concomitant]
     Active Substance: RIVAROXABAN
     Route: 048
  3. METOHEXAL RETARD [Concomitant]
     Active Substance: METOPROLOL SUCCINATE
  4. CALCIUM + VITAMIN D [Concomitant]
     Active Substance: CALCIUM\VITAMIN D
  5. APREDNISLON [Concomitant]
     Active Substance: PREDNISOLONE
     Route: 048
  6. ESBRIET [Suspect]
     Active Substance: PIRFENIDONE
     Dosage: 1602 MG
     Route: 048
  7. LASIX [Concomitant]
     Active Substance: FUROSEMIDE
  8. ESOMEPRAZOL [Concomitant]
     Active Substance: ESOMEPRAZOLE
  9. PANTOLOC [Concomitant]
     Active Substance: PANTOPRAZOLE SODIUM
     Route: 048
  10. SPIRONO [Concomitant]
     Route: 048
  11. OXYGEN. [Concomitant]
     Active Substance: OXYGEN
  12. ESBRIET [Suspect]
     Active Substance: PIRFENIDONE
     Indication: INTERSTITIAL LUNG DISEASE
     Dosage: 801 MG
     Route: 048
  13. ESBRIET [Suspect]
     Active Substance: PIRFENIDONE
     Dosage: 2403 MG
     Route: 048
     Dates: start: 201312
  14. METOHEXAL [Concomitant]
     Active Substance: METOPROLOL SUCCINATE

REACTIONS (14)
  - Myocardial infarction [Fatal]
  - Infection [Recovering/Resolving]
  - Secretion discharge [Recovered/Resolved]
  - Urine output increased [Unknown]
  - Back pain [Recovering/Resolving]
  - Pruritus [Recovering/Resolving]
  - Fluid imbalance [Unknown]
  - Pain in extremity [Unknown]
  - Cardiac failure [Unknown]
  - Infection [Recovering/Resolving]
  - Secretion discharge [Recovering/Resolving]
  - Dyspnoea [Unknown]
  - Pulmonary embolism [Unknown]
  - Fatigue [Unknown]

NARRATIVE: CASE EVENT DATE: 20131202
